FAERS Safety Report 5752668-5 (Version None)
Quarter: 2008Q2

REPORT INFORMATION
  Report Type: 
  Country: None (occurrence: None)
  Receive Date: 20080527
  Receipt Date: 20080527
  Transmission Date: 20081010
  Serious: Yes (Hospitalization)
  Sender: FDA-Public Use
  Company Number: None

PATIENT
  Age: 57 Year
  Sex: Male
  Weight: 75.6 kg

DRUGS (3)
  1. BEVACIZUMAB  7.5 [Suspect]
     Indication: GASTROINTESTINAL DISORDER
     Dosage: 7.5  Q 21 DAYS IV DRIP
     Route: 041
     Dates: start: 20080429, end: 20080519
  2. DOCETAXEL [Suspect]
     Indication: GASTROINTESTINAL DISORDER
     Dosage: 70  Q 21 DAYS  IV DRIP
     Route: 041
     Dates: start: 20080429, end: 20080519
  3. OXALIPLATIN [Suspect]
     Indication: GASTROINTESTINAL DISORDER
     Dosage: 75 Q 21 D  IV DRIP
     Route: 041
     Dates: start: 20080429, end: 20080519

REACTIONS (4)
  - DEHYDRATION [None]
  - DIARRHOEA [None]
  - DRUG INEFFECTIVE [None]
  - FEBRILE NEUTROPENIA [None]
